FAERS Safety Report 17675167 (Version 1)
Quarter: 2020Q2

REPORT INFORMATION
  Report Type: Spontaneous
  Country: PT (occurrence: PT)
  Receive Date: 20200416
  Receipt Date: 20200416
  Transmission Date: 20200714
  Serious: Yes (Other)
  Sender: FDA-Public Use
  Company Number: PT-ACCORD-178596

PATIENT
  Age: 26 Year
  Sex: Female

DRUGS (13)
  1. DARBEPOETIN ALFA [Suspect]
     Active Substance: DARBEPOETIN ALFA
     Indication: CHRONIC KIDNEY DISEASE-MINERAL AND BONE DISORDER
     Route: 065
  2. FOLIC ACID. [Suspect]
     Active Substance: FOLIC ACID
     Indication: CHRONIC KIDNEY DISEASE-MINERAL AND BONE DISORDER
     Route: 065
  3. SIMVASTATIN. [Suspect]
     Active Substance: SIMVASTATIN
     Indication: CHRONIC KIDNEY DISEASE-MINERAL AND BONE DISORDER
     Route: 065
  4. CINACALCET/CINACALCET HYDROCHLORIDE [Suspect]
     Active Substance: CINACALCET\CINACALCET HYDROCHLORIDE
     Indication: CHRONIC KIDNEY DISEASE-MINERAL AND BONE DISORDER
     Route: 065
  5. OMEPRAZOLE. [Suspect]
     Active Substance: OMEPRAZOLE
     Indication: CHRONIC KIDNEY DISEASE-MINERAL AND BONE DISORDER
     Route: 065
  6. PREDNISOLONE. [Suspect]
     Active Substance: PREDNISOLONE
     Indication: CHRONIC KIDNEY DISEASE-MINERAL AND BONE DISORDER
     Route: 065
  7. COLECALCIFEROL [Suspect]
     Active Substance: CHOLECALCIFEROL
     Indication: CHRONIC KIDNEY DISEASE-MINERAL AND BONE DISORDER
     Route: 065
  8. CALCIUM CARBONATE. [Suspect]
     Active Substance: CALCIUM CARBONATE
     Indication: CHRONIC KIDNEY DISEASE-MINERAL AND BONE DISORDER
     Route: 065
  9. MYCOPHENOLATE MOFETIL/MYCOPHENOLATE SODIUM/MYCOPHENOLIC ACID [Suspect]
     Active Substance: MYCOPHENOLIC ACID
     Indication: CHRONIC KIDNEY DISEASE-MINERAL AND BONE DISORDER
     Route: 065
  10. NICOTINAMIDE/PYRIDOXINE HYDROCHLORIDE/RIBOFLAVIN/THIAMINE HYDROCHLORIDE [Suspect]
     Active Substance: NIACINAMIDE\PYRIDOXINE HYDROCHLORIDE\RIBOFLAVIN\THIAMINE HYDROCHLORIDE
     Indication: CHRONIC KIDNEY DISEASE-MINERAL AND BONE DISORDER
     Route: 065
  11. ICODEXTRIN [Suspect]
     Active Substance: ICODEXTRIN
     Indication: PRODUCT USED FOR UNKNOWN INDICATION
     Dosage: 2 L, UNK, 1.36% GLUCOSE PLUS 2L OF ICODEXTRIN SOLUTION
     Route: 065
  12. CALCITRIOL. [Suspect]
     Active Substance: CALCITRIOL
     Indication: CHRONIC KIDNEY DISEASE-MINERAL AND BONE DISORDER
     Route: 065
  13. ENOXAPARIN [Suspect]
     Active Substance: ENOXAPARIN
     Indication: CHRONIC KIDNEY DISEASE-MINERAL AND BONE DISORDER
     Route: 065

REACTIONS (3)
  - Chronic kidney disease-mineral and bone disorder [Unknown]
  - Therapeutic response decreased [Unknown]
  - Off label use [Unknown]
